FAERS Safety Report 6566713-0 (Version None)
Quarter: 2010Q1

REPORT INFORMATION
  Report Type: 
  Country: None (occurrence: None)
  Receive Date: 20100202
  Receipt Date: 20100121
  Transmission Date: 20100710
  Serious: Yes (Death, Hospitalization)
  Sender: FDA-Public Use
  Company Number: NSADSS2002011916

PATIENT
  Sex: Female
  Weight: 77 kg

DRUGS (12)
  1. REMICADE [Suspect]
     Indication: RHEUMATOID ARTHRITIS
     Route: 041
     Dates: start: 20020205
  2. REMICADE [Suspect]
     Route: 041
     Dates: start: 20020205
  3. REMICADE [Suspect]
     Route: 041
     Dates: start: 20020205
  4. AMLOR [Suspect]
     Indication: DRUG USE FOR UNKNOWN INDICATION
     Route: 048
     Dates: start: 20020205
  5. CORTICOSTEROID NOS [Concomitant]
     Route: 065
  6. METHOTREXATE [Concomitant]
     Indication: RHEUMATOID ARTHRITIS
     Dates: start: 20020515
  7. CORTANCYL [Concomitant]
     Indication: RHEUMATOID ARTHRITIS
     Route: 048
     Dates: start: 20010515
  8. CORTANCYL [Concomitant]
     Dates: start: 20010415
  9. COZAAR [Concomitant]
     Indication: HYPERTENSION
     Route: 048
  10. LASILIX [Concomitant]
     Indication: HYPERTENSION
     Route: 048
     Dates: start: 20001101
  11. DI-ANTALVIC [Concomitant]
     Indication: RHEUMATOID ARTHRITIS
     Route: 048
  12. SPECIAFOLDINE [Concomitant]
     Dates: start: 20010101

REACTIONS (8)
  - DISSEMINATED INTRAVASCULAR COAGULATION [None]
  - GASTRIC PERFORATION [None]
  - GASTROINTESTINAL NECROSIS [None]
  - INTESTINAL PERFORATION [None]
  - MEDIASTINITIS [None]
  - NECROSIS ISCHAEMIC [None]
  - PERITONITIS [None]
  - SEPSIS [None]
